FAERS Safety Report 4313843-X (Version None)
Quarter: 2004Q1

REPORT INFORMATION
  Report Type: 
  Country: None (occurrence: None)
  Receive Date: 20040304
  Receipt Date: 20040122
  Transmission Date: 20041129
  Serious: Yes (Disabling)
  Sender: FDA-Public Use
  Company Number: 2003041739

PATIENT
  Age: 52 Year
  Sex: Female

DRUGS (7)
  1. GEODON [Suspect]
     Indication: HALLUCINATION
     Dosage: 120 MG (DAILY) ORAL
     Route: 048
     Dates: start: 20020820
  2. LORAZEPAM [Suspect]
     Indication: ILL-DEFINED DISORDER
     Dosage: UNKNOWN (UNKNOWN), UNKNOWN
     Route: 065
  3. ABILIFY [Suspect]
     Indication: HALLUCINATION
     Dosage: 15 MG (BID), ORAL
     Route: 048
     Dates: start: 20030115
  4. VENLAFAXINE HCL [Concomitant]
  5. PAROXETINE HCL [Concomitant]
  6. ALPRAZOLAM [Concomitant]
  7. RISPERIDONE [Concomitant]

REACTIONS (4)
  - BLEPHAROSPASM [None]
  - CORNEAL REFLEX DECREASED [None]
  - GRIMACING [None]
  - PHOTOPHOBIA [None]
